FAERS Safety Report 7962117-4 (Version None)
Quarter: 2011Q4

REPORT INFORMATION
  Report Type: 
  Country: None (occurrence: None)
  Receive Date: 20111207
  Receipt Date: 20111003
  Transmission Date: 20120403
  Serious: Yes (Hospitalization)
  Sender: FDA-Public Use
  Company Number: JP-ROCHE-1013568

PATIENT
  Sex: Female

DRUGS (5)
  1. COPEGUS [Suspect]
     Indication: HEPATITIS C
     Route: 048
     Dates: start: 20110610, end: 20110824
  2. PEG-INTERFERON LAMBDA [Suspect]
     Dates: start: 20110818
  3. PEG-INTERFERON LAMBDA [Suspect]
     Indication: HEPATITIS C
     Dates: start: 20110610
  4. BMS-790052 (HCV NS5A INHIBITOR) [Suspect]
     Indication: HEPATITIS C
     Dates: start: 20110610
  5. ETIZOLAM [Concomitant]
     Dates: start: 20080101

REACTIONS (3)
  - ALANINE AMINOTRANSFERASE INCREASED [None]
  - BLOOD BILIRUBIN INCREASED [None]
  - ASPARTATE AMINOTRANSFERASE INCREASED [None]
